FAERS Safety Report 10588557 (Version 2)
Quarter: 2014Q4

REPORT INFORMATION
  Report Type: Report from Study
  Country: FR (occurrence: FR)
  Receive Date: 20141117
  Receipt Date: 20141117
  Transmission Date: 20150529
  Serious: Yes (Death, Hospitalization)
  Sender: FDA-Public Use
  Company Number: FR-JNJFOC-20140913937

PATIENT
  Age: 83 Year
  Sex: Male
  Weight: 67 kg

DRUGS (3)
  1. LASILIX [Concomitant]
     Active Substance: FUROSEMIDE
     Indication: HYPERTENSION
  2. IBRUTINIB [Suspect]
     Active Substance: IBRUTINIB
     Indication: MANTLE CELL LYMPHOMA
     Route: 048
     Dates: start: 20140818, end: 20141102
  3. HYPERIUM [Concomitant]
     Active Substance: RILMENIDINE PHOSPHATE
     Indication: HYPERTENSION

REACTIONS (8)
  - White blood cell count increased [Unknown]
  - Staphylococcal sepsis [Unknown]
  - Vomiting [Unknown]
  - Neutrophil count increased [Unknown]
  - Mantle cell lymphoma [Fatal]
  - Leukostasis syndrome [Unknown]
  - Lymphocytosis [Unknown]
  - Hyperkalaemia [Unknown]

NARRATIVE: CASE EVENT DATE: 20141031
